FAERS Safety Report 11444666 (Version 1)
Quarter: 2015Q3

REPORT INFORMATION
  Report Type: Spontaneous
  Country: US (occurrence: None)
  Receive Date: 20150831
  Receipt Date: 20150831
  Transmission Date: 20151125
  Serious: Yes (Hospitalization)
  Sender: FDA-Public Use
  Company Number: None

PATIENT
  Age: 73 Year
  Sex: Male
  Weight: 69.4 kg

DRUGS (8)
  1. DIOVAN [Concomitant]
     Active Substance: VALSARTAN
  2. GABAPENTI [Concomitant]
  3. PERCOCET [Concomitant]
     Active Substance: ACETAMINOPHEN\OXYCODONE HYDROCHLORIDE
  4. LEVOFLOXACIN. [Suspect]
     Active Substance: LEVOFLOXACIN
     Indication: BRONCHITIS
     Route: 048
     Dates: start: 20150808, end: 20150814
  5. VITAMINS [Concomitant]
     Active Substance: VITAMINS
  6. METOPROLOL [Concomitant]
     Active Substance: METOPROLOL
  7. LIPITOR [Concomitant]
     Active Substance: ATORVASTATIN CALCIUM
  8. AMLODIPINE [Concomitant]
     Active Substance: AMLODIPINE BESYLATE

REACTIONS (12)
  - Hypoaesthesia [None]
  - Pain [None]
  - Dysarthria [None]
  - Movement disorder [None]
  - Paraesthesia [None]
  - Tongue disorder [None]
  - Neuropathy peripheral [None]
  - Weight decreased [None]
  - Ageusia [None]
  - Insomnia [None]
  - Burning sensation [None]
  - Inappropriate antidiuretic hormone secretion [None]

NARRATIVE: CASE EVENT DATE: 20150814
